FAERS Safety Report 7987839-0 (Version None)
Quarter: 2011Q4

REPORT INFORMATION
  Report Type: 
  Country: None (occurrence: None)
  Receive Date: 20111216
  Receipt Date: 20110506
  Transmission Date: 20120403
  Serious: No
  Sender: FDA-Public Use
  Company Number: US-BRISTOL-MYERS SQUIBB COMPANY-15728546

PATIENT
  Age: 56 Year
  Sex: Male

DRUGS (5)
  1. ABILIFY [Suspect]
  2. GEODON [Suspect]
     Route: 065
  3. LITHIUM CARBONATE [Suspect]
     Route: 065
  4. DEPAKOTE [Suspect]
     Dosage: DEPAKOTE ER
     Route: 065
  5. SEROQUEL [Suspect]
     Dosage: SEROQUEL XR
     Route: 065

REACTIONS (1)
  - ANXIETY [None]
